FAERS Safety Report 21066733 (Version 1)
Quarter: 2022Q3

REPORT INFORMATION
  Report Type: Report from Study
  Country: BR (occurrence: BR)
  Receive Date: 20220712
  Receipt Date: 20220712
  Transmission Date: 20221026
  Serious: Yes (Other)
  Sender: FDA-Public Use
  Company Number: BR-JNJFOC-20220710444

PATIENT
  Age: 8 Year
  Sex: Female
  Weight: 36 kg

DRUGS (3)
  1. INFLIXIMAB [Suspect]
     Active Substance: INFLIXIMAB
     Indication: Colitis ulcerative
     Route: 041
  2. INFLIXIMAB [Suspect]
     Active Substance: INFLIXIMAB
     Dosage: 4 AMPOULES/MONTH
     Route: 041
  3. INFLIXIMAB [Suspect]
     Active Substance: INFLIXIMAB
     Dosage: 390 MG
     Route: 041

REACTIONS (3)
  - Colitis ulcerative [Not Recovered/Not Resolved]
  - Drug level below therapeutic [Unknown]
  - Off label use [Unknown]

NARRATIVE: CASE EVENT DATE: 20201201
